FAERS Safety Report 6054206-9 (Version None)
Quarter: 2009Q1

REPORT INFORMATION
  Report Type: 
  Country: None (occurrence: None)
  Receive Date: 20090121
  Receipt Date: 20080509
  Transmission Date: 20090719
  Serious: Yes (Hospitalization, Other)
  Sender: FDA-Public Use
  Company Number: US-WYE-H04008408

PATIENT
  Age: 56 Year
  Sex: Female

DRUGS (3)
  1. PREMPRO [Suspect]
     Indication: HORMONE THERAPY
     Dosage: PINK 0.625/2.5 MG TABLET AT AN UNSPECIFIED FREQUENCY, ORAL
     Route: 048
     Dates: end: 20000101
  2. PREMARIN [Suspect]
     Indication: HORMONE THERAPY
     Dosage: MAROON, OBLONG 0.625 MG TABLET AT AN UNSPECIFIED FREQUENCY, ORAL
     Route: 048
     Dates: start: 19890101
  3. PROVERA [Suspect]
     Indication: HORMONE THERAPY
     Dosage: ORAL
     Route: 048
     Dates: start: 19890101

REACTIONS (1)
  - BREAST CANCER [None]
